FAERS Safety Report 14930022 (Version 1)
Quarter: 2018Q2

REPORT INFORMATION
  Report Type: Spontaneous
  Country: US (occurrence: US)
  Receive Date: 20180523
  Receipt Date: 20180523
  Transmission Date: 20180711
  Serious: Yes (Disabling, Other)
  Sender: FDA-Public Use
  Company Number: US-SA-2018SA137776

PATIENT
  Age: 70 Year
  Sex: Female

DRUGS (1)
  1. ALLEGRA D-12 HOUR [Suspect]
     Active Substance: FEXOFENADINE HYDROCHLORIDE\PSEUDOEPHEDRINE HYDROCHLORIDE
     Indication: PROPHYLAXIS
     Dosage: UNK UNK, QD

REACTIONS (3)
  - Macular degeneration [Unknown]
  - Product packaging issue [Unknown]
  - Visual impairment [Unknown]

NARRATIVE: CASE EVENT DATE: 2001
